FAERS Safety Report 15968582 (Version 1)
Quarter: 2019Q1

REPORT INFORMATION
  Report Type: Report from Study
  Country: US (occurrence: US)
  Receive Date: 20190215
  Receipt Date: 20190215
  Transmission Date: 20190418
  Serious: No
  Sender: FDA-Public Use
  Company Number: US-ALLERGAN-1905002US

PATIENT
  Age: 59 Year
  Sex: Female

DRUGS (4)
  1. UNKNOWN PSYCH MED [Concomitant]
     Indication: MANIA
     Dosage: UNK
     Route: 048
  2. UNKNOWN DRY EYE DROPS [Concomitant]
     Indication: DRY EYE
     Dosage: UNK
     Route: 047
  3. ASENAPINE MALEATE 2.5MG TAB (TBD) [Suspect]
     Active Substance: ASENAPINE MALEATE
     Indication: MANIA
     Dosage: 10 MG
     Route: 060
     Dates: start: 20181101, end: 201812
  4. ASENAPINE MALEATE 2.5MG TAB (TBD) [Suspect]
     Active Substance: ASENAPINE MALEATE
     Dosage: 10 MG
     Route: 060
     Dates: start: 2014

REACTIONS (5)
  - Face oedema [Recovered/Resolved]
  - Dry eye [Not Recovered/Not Resolved]
  - Oedema peripheral [Recovered/Resolved]
  - Muscle oedema [Recovered/Resolved]
  - Diplopia [Recovered/Resolved]

NARRATIVE: CASE EVENT DATE: 2016
